FAERS Safety Report 5065226-5 (Version None)
Quarter: 2006Q3

REPORT INFORMATION
  Report Type: 
  Country: None (occurrence: None)
  Receive Date: 20060706
  Receipt Date: 20050729
  Transmission Date: 20061208
  Serious: Yes (Other)
  Sender: FDA-Public Use
  Company Number: 19676

PATIENT
  Sex: Male

DRUGS (2)
  1. MIDAZOLAM HCL [Suspect]
     Indication: COLONOSCOPY
  2. MIDAZOLAM [Suspect]

REACTIONS (1)
  - DRUG INEFFECTIVE [None]
